FAERS Safety Report 5320455-8 (Version None)
Quarter: 2007Q1

REPORT INFORMATION
  Report Type: 
  Country: None (occurrence: None)
  Receive Date: 20070209
  Receipt Date: 20060725
  Transmission Date: 20070707
  Serious: No
  Sender: FDA-Public Use
  Company Number: 06P-163-0339379-00

PATIENT
  Age: 80 Year
  Sex: Male

DRUGS (8)
  1. HYTRIN [Suspect]
     Indication: DRUG USE FOR UNKNOWN INDICATION
     Dates: end: 20060423
  2. FUROSEMIDE [Concomitant]
  3. PROCAINAMIDE [Concomitant]
  4. GABAPENTIN [Concomitant]
  5. ATENOLOL [Concomitant]
  6. GEMFIBROZIL [Concomitant]
  7. VITAMIN CAP [Concomitant]
  8. POTASSIUM CHLORIDE [Concomitant]

REACTIONS (3)
  - CONTUSION [None]
  - FALL [None]
  - SYNCOPE [None]
